FAERS Safety Report 4718259-X (Version None)
Quarter: 2005Q3

REPORT INFORMATION
  Report Type: 
  Country: None (occurrence: None)
  Receive Date: 20050714
  Receipt Date: 20050208
  Transmission Date: 20060218
  Serious: Yes (Other)
  Sender: FDA-Public Use
  Company Number: HQWYE202709FEB05

PATIENT
  Sex: Female
  Weight: 52.21 kg

DRUGS (1)
  1. ADVIL [Suspect]
     Dosage: 54 TABLETS, ORAL
     Route: 048
     Dates: start: 20000203, end: 20050203

REACTIONS (2)
  - ABDOMINAL PAIN [None]
  - OVERDOSE [None]
